FAERS Safety Report 5327895-1 (Version None)
Quarter: 2007Q2

REPORT INFORMATION
  Report Type: 
  Country: None (occurrence: None)
  Receive Date: 20070517
  Receipt Date: 20070508
  Transmission Date: 20071010
  Serious: Yes (Hospitalization, Other)
  Sender: FDA-Public Use
  Company Number: DZ-PFIZER INC-2007036994

PATIENT
  Age: 73 Year
  Sex: Female

DRUGS (5)
  1. CELEBREX [Suspect]
     Indication: MUSCULOSKELETAL PAIN
     Route: 048
     Dates: start: 20070423, end: 20070430
  2. NETROMYCINE [Concomitant]
     Indication: URINARY TRACT INFECTION
     Route: 050
  3. ALL OTHER THERAPEUTIC PRODUCTS [Concomitant]
     Indication: URINARY TRACT INFECTION
     Route: 048
  4. PARACETAMOL [Concomitant]
     Route: 048
  5. COTAREG [Concomitant]
     Dosage: TEXT:ONE TABLET
     Route: 048

REACTIONS (2)
  - ASPIRATION BONE MARROW ABNORMAL [None]
  - HAEMATEMESIS [None]
